FAERS Safety Report 19407590 (Version 2)
Quarter: 2021Q2

REPORT INFORMATION
  Report Type: Spontaneous
  Country: US (occurrence: US)
  Receive Date: 20210612
  Receipt Date: 20210622
  Transmission Date: 20210717
  Serious: No
  Sender: FDA-Public Use
  Company Number: US-JNJFOC-20210617171

PATIENT

DRUGS (2)
  1. SPRAVATO [Suspect]
     Active Substance: ESKETAMINE
     Indication: PRODUCT USED FOR UNKNOWN INDICATION
  2. KETAMINE [Suspect]
     Active Substance: KETAMINE
     Route: 042

REACTIONS (3)
  - Medication error [Unknown]
  - Treatment noncompliance [Unknown]
  - Wrong product administered [Unknown]
